FAERS Safety Report 6875914-3 (Version None)
Quarter: 2010Q3

REPORT INFORMATION
  Report Type: 
  Country: None (occurrence: None)
  Receive Date: 20100723
  Receipt Date: 20100714
  Transmission Date: 20110219
  Serious: Yes (Life-Threatening, Hospitalization)
  Sender: FDA-Public Use
  Company Number: WAES 1007USA02223

PATIENT
  Age: 66 Year
  Sex: Male

DRUGS (14)
  1. COZAAR [Suspect]
     Dosage: 100 MG/DAILY, PO
     Route: 048
     Dates: start: 20080901
  2. TAB BLINDED THERAPY [Suspect]
     Indication: ACUTE CORONARY SYNDROME
     Dates: start: 20080702
  3. TAB BLINDED THERAPY [Suspect]
     Indication: ACUTE CORONARY SYNDROME
     Route: 048
     Dates: start: 20080702
  4. TAB PLACEBO (UNSPECIFIED) [Suspect]
     Indication: ACUTE CORONARY SYNDROME
     Route: 048
     Dates: start: 20080702
  5. BISOPROLOL [Suspect]
     Dosage: 20 MG/DAILY, PO
     Route: 048
     Dates: start: 20080630, end: 20100706
  6. ATROVENT [Concomitant]
  7. BRICANYL [Concomitant]
  8. BRICANYL [Concomitant]
  9. FURIX [Concomitant]
  10. LANTUS [Concomitant]
  11. METFORMIN HCL [Concomitant]
  12. OMEPRAZOLE [Concomitant]
  13. SPIRONOLACTONE [Concomitant]
  14. WARFARIN SODIUM [Concomitant]

REACTIONS (2)
  - BRADYCARDIA [None]
  - TORSADE DE POINTES [None]
